FAERS Safety Report 4876129-0 (Version None)
Quarter: 2006Q1

REPORT INFORMATION
  Report Type: 
  Country: None (occurrence: None)
  Receive Date: 20060110
  Receipt Date: 20050114
  Transmission Date: 20060701
  Serious: No
  Sender: FDA-Public Use
  Company Number: US-GLAXOSMITHKLINE-A0540745A

PATIENT
  Age: 76 Year
  Sex: Female

DRUGS (1)
  1. ACLOVATE OINTMENT [Suspect]
     Indication: FUNGAL INFECTION

REACTIONS (2)
  - DRY EYE [None]
  - DRY MOUTH [None]
